FAERS Safety Report 9465143 (Version 3)
Quarter: 2017Q2

REPORT INFORMATION
  Report Type: Report from Study
  Country: DE (occurrence: DE)
  Receive Date: 20130819
  Receipt Date: 20170614
  Transmission Date: 20170830
  Serious: Yes (Death, Other)
  Sender: FDA-Public Use
  Company Number: DE-CELGENEUS-062-21880-13080843

PATIENT

DRUGS (6)
  1. CIPROFLOXACIN. [Concomitant]
     Active Substance: CIPROFLOXACIN
     Indication: PROPHYLAXIS
     Route: 065
  2. DEXAMETHASONE. [Suspect]
     Active Substance: DEXAMETHASONE
     Indication: AMYLOIDOSIS
     Dosage: 20 MILLIGRAM
     Route: 048
  3. REVLIMID [Suspect]
     Active Substance: LENALIDOMIDE
     Indication: AMYLOIDOSIS
     Dosage: 10 MILLIGRAM
     Route: 048
  4. HEPARIN LMW [Concomitant]
     Active Substance: UNSPECIFIED INGREDIENT
     Indication: THROMBOSIS PROPHYLAXIS
     Route: 065
  5. MELPHALAN. [Suspect]
     Active Substance: MELPHALAN
     Indication: AMYLOIDOSIS
     Dosage: .15 MILLIGRAM/KILOGRAM
     Route: 048
  6. ASPIRIN. [Concomitant]
     Active Substance: ASPIRIN
     Indication: THROMBOSIS PROPHYLAXIS
     Route: 065

REACTIONS (24)
  - Amyloidosis [Fatal]
  - Anaemia [Unknown]
  - Sepsis [Fatal]
  - Haematotoxicity [Unknown]
  - Deep vein thrombosis [Unknown]
  - Liver disorder [Unknown]
  - Gastroenteritis [Unknown]
  - Adverse event [Unknown]
  - Renal impairment [Unknown]
  - Syncope [Unknown]
  - C-reactive protein increased [Unknown]
  - Death [Fatal]
  - Acute kidney injury [Unknown]
  - Pneumonia [Unknown]
  - Neutropenia [Unknown]
  - Pyrexia [Unknown]
  - Erysipelas [Unknown]
  - Thrombocytopenia [Unknown]
  - Bronchitis [Unknown]
  - Infection [Fatal]
  - Cardiac failure [Fatal]
  - Autonomic neuropathy [Unknown]
  - Lymphopenia [Unknown]
  - Gastrointestinal disorder [Unknown]
